FAERS Safety Report 9423086 (Version 1)
Quarter: 2013Q3

REPORT INFORMATION
  Report Type: Spontaneous
  Country: GB (occurrence: GB)
  Receive Date: 20130726
  Receipt Date: 20130726
  Transmission Date: 20140515
  Serious: Yes (Hospitalization)
  Sender: FDA-Public Use
  Company Number: GB-PFIZER INC-2013212810

PATIENT
  Age: 64 Year
  Sex: Female
  Weight: 75.7 kg

DRUGS (11)
  1. RAMIPRIL [Suspect]
     Indication: HYPERTENSION
     Dosage: 2.5 MG, 1X/DAY
     Route: 048
     Dates: start: 20130609, end: 20130626
  2. SENNA [Concomitant]
     Dosage: UNK
  3. DOCUSATE [Concomitant]
     Dosage: UNK
  4. CHLORHEXIDINE [Concomitant]
     Dosage: UNK
  5. DALTEPARIN [Concomitant]
     Dosage: UNK
  6. CLOTRIMAZOLE [Concomitant]
     Dosage: UNK
  7. MELATONIN [Concomitant]
     Dosage: UNK
  8. OMEPRAZOLE [Concomitant]
     Dosage: UNK
  9. PARACETAMOL [Concomitant]
     Dosage: UNK
  10. ZOPICLONE [Concomitant]
     Dosage: UNK
  11. MORPHINE SULFATE [Concomitant]
     Dosage: UNK

REACTIONS (4)
  - Rash generalised [Recovering/Resolving]
  - Blister [Recovering/Resolving]
  - Pruritus [Recovering/Resolving]
  - Pain [Unknown]
